FAERS Safety Report 4646244-5 (Version None)
Quarter: 2005Q2

REPORT INFORMATION
  Report Type: 
  Country: None (occurrence: None)
  Receive Date: 20050427
  Receipt Date: 20050408
  Transmission Date: 20051028
  Serious: Yes (Hospitalization)
  Sender: FDA-Public Use
  Company Number: ES-ROCHE-401381

PATIENT
  Age: 57 Year
  Sex: Female

DRUGS (20)
  1. DACLIZUMAB [Suspect]
     Route: 042
     Dates: start: 20050109, end: 20050109
  2. DACLIZUMAB [Suspect]
     Route: 042
     Dates: start: 20050102, end: 20050102
  3. MYCOPHENOLATE MOFETIL [Suspect]
     Route: 011
     Dates: start: 20050102, end: 20050105
  4. MYCOPHENOLATE MOFETIL [Suspect]
     Route: 048
     Dates: start: 20050106, end: 20050315
  5. MYCOPHENOLATE MOFETIL [Suspect]
     Route: 048
     Dates: start: 20050316
  6. TACROLIMUS [Suspect]
     Dosage: DOSE ADJUSTED TO REACH PREDEFINED TARGET LEVELS.
     Route: 048
     Dates: start: 20050107
  7. PREDNISONE [Suspect]
     Dosage: DOSE TAPERED ACCORDING TO LOCAL PROTOCOL.
     Route: 065
     Dates: start: 20050103
  8. TRAMADOL HCL [Concomitant]
     Dosage: TAKEN 02-03 JAN 2005 AND AGAIN ON 05 JANUARY 2005.
     Dates: start: 20050102, end: 20050105
  9. AZTREONAM [Concomitant]
     Dates: start: 20050102, end: 20050103
  10. METOCLOPRAMIDE HCL [Concomitant]
     Dates: start: 20050102, end: 20050103
  11. SEGURIL [Concomitant]
     Dates: start: 20050102, end: 20050102
  12. OMEPRAZOLE [Concomitant]
     Dates: start: 20050102, end: 20050102
  13. INSULINA [Concomitant]
     Dates: start: 20050102, end: 20050103
  14. BEMIPARIN SODIUM [Concomitant]
     Indication: THROMBOSIS PROPHYLAXIS
     Dosage: DRUG REPORTED ONLY AS BEMIPARINE.
     Dates: start: 20050103, end: 20050109
  15. NISTATIN [Concomitant]
     Indication: INFECTION PROPHYLAXIS
     Dates: start: 20050103, end: 20050109
  16. ACETAMINOPHEN [Concomitant]
     Indication: PAIN
     Dates: start: 20050103
  17. PANTOPRAZOL [Concomitant]
     Dates: start: 20050103
  18. DESMOPRESSIN [Concomitant]
     Dates: start: 20050104, end: 20050104
  19. VALGANCICLOVIR [Concomitant]
     Indication: INFECTION PROPHYLAXIS
     Dates: start: 20050404
  20. MORPHINE CHLORIDE [Concomitant]
     Indication: PAIN
     Dates: start: 20050102, end: 20050102

REACTIONS (3)
  - ANAEMIA [None]
  - CYTOMEGALOVIRUS INFECTION [None]
  - DIARRHOEA [None]
